FAERS Safety Report 9391052 (Version 1)
Quarter: 2013Q3

REPORT INFORMATION
  Report Type: Spontaneous
  Country: FR (occurrence: FR)
  Receive Date: 20130709
  Receipt Date: 20130709
  Transmission Date: 20140515
  Serious: Yes (Life-Threatening)
  Sender: FDA-Public Use
  Company Number: FR-009507513-1307FRA000972

PATIENT
  Age: 86 Year
  Sex: Female

DRUGS (2)
  1. FOSAVANCE [Suspect]
     Route: 048
  2. FLECTOR [Suspect]
     Indication: BACK PAIN
     Route: 048

REACTIONS (1)
  - Gastric ulcer haemorrhage [Recovered/Resolved]
